FAERS Safety Report 4998375-8 (Version None)
Quarter: 2006Q2

REPORT INFORMATION
  Report Type: 
  Country: None (occurrence: None)
  Receive Date: 20060508
  Receipt Date: 20050824
  Transmission Date: 20061013
  Serious: Yes (Other)
  Sender: FDA-Public Use
  Company Number: BR-2005-017707

PATIENT
  Age: 28 Year
  Sex: Female

DRUGS (2)
  1. MICROVLAR (21) (ETHINYLESTRADIOL, LEVONORGESTREL) COATED TABLET [Suspect]
     Indication: ORAL CONTRACEPTION
     Dosage: 1 TAB (S), ORAL
     Route: 048
     Dates: start: 19930101, end: 20050601
  2. MICROVLAR (21) (ETHINYLESTRADIOL, LEVONORGESTREL) COATED TABLET [Suspect]
     Indication: ORAL CONTRACEPTION
     Dosage: 1 TAB (S), ORAL
     Route: 048
     Dates: start: 20050701, end: 20050812

REACTIONS (4)
  - ABORTION SPONTANEOUS [None]
  - MEDICATION ERROR [None]
  - OLIGOMENORRHOEA [None]
  - PREGNANCY ON ORAL CONTRACEPTIVE [None]
